FAERS Safety Report 15472164 (Version 2)
Quarter: 2018Q4

REPORT INFORMATION
  Report Type: Spontaneous
  Country: US (occurrence: US)
  Receive Date: 20181008
  Receipt Date: 20181102
  Transmission Date: 20190205
  Serious: No
  Sender: FDA-Public Use
  Company Number: US-BIOGEN-2018BI00640620

PATIENT
  Sex: Female

DRUGS (1)
  1. TECFIDERA [Suspect]
     Active Substance: DIMETHYL FUMARATE
     Indication: MULTIPLE SCLEROSIS
     Route: 065
     Dates: start: 20180306

REACTIONS (11)
  - Skin warm [Unknown]
  - Pruritus generalised [Unknown]
  - Abdominal pain upper [Unknown]
  - Hypophagia [Unknown]
  - Nausea [Unknown]
  - Asthenia [Unknown]
  - Faeces discoloured [Unknown]
  - Generalised erythema [Unknown]
  - Flushing [Unknown]
  - Vomiting [Unknown]
  - Malaise [Unknown]
